FAERS Safety Report 6700071-3 (Version None)
Quarter: 2010Q2

REPORT INFORMATION
  Report Type: 
  Country: None (occurrence: None)
  Receive Date: 20100427
  Receipt Date: 20100427
  Transmission Date: 20101027
  Serious: Yes (Other)
  Sender: FDA-Public Use
  Company Number: None

PATIENT
  Age: 47 Year
  Sex: Female
  Weight: 86.1834 kg

DRUGS (1)
  1. NYSTATIN [Suspect]
     Indication: ORAL CANDIDIASIS
     Dosage: 1 TABLE SPOON 4 X DAILY
     Dates: start: 20100419, end: 20100424

REACTIONS (3)
  - BLOOD PRESSURE DECREASED [None]
  - HEART RATE INCREASED [None]
  - HEART RATE IRREGULAR [None]
